FAERS Safety Report 21781670 (Version 1)
Quarter: 2022Q4

REPORT INFORMATION
  Report Type: Spontaneous
  Country: US (occurrence: None)
  Receive Date: 20221223
  Receipt Date: 20221223
  Transmission Date: 20230113
  Serious: Yes (Hospitalization)
  Sender: FDA-Public Use
  Company Number: None

PATIENT
  Age: 7 Year
  Sex: Female
  Weight: 31.95 kg

DRUGS (12)
  1. CYCLOPHOSPHAMIDE [Suspect]
     Active Substance: CYCLOPHOSPHAMIDE
     Dates: end: 20220620
  2. CYTARABINE [Suspect]
     Active Substance: CYTARABINE
     Dates: end: 20221207
  3. DAUNORUBICIN [Suspect]
     Active Substance: DAUNORUBICIN
     Dates: end: 20220428
  4. DEXAMETHASONE [Suspect]
     Active Substance: DEXAMETHASONE
     Dates: end: 20221031
  5. DOXORUBICIN HYDROCHLORIDE [Suspect]
     Active Substance: DOXORUBICIN HYDROCHLORIDE
     Dates: end: 20221108
  6. LEUCOVORIN CALCIUM [Suspect]
     Active Substance: LEUCOVORIN CALCIUM
     Dates: end: 20221001
  7. MERCAPTOPURINE [Suspect]
     Active Substance: MERCAPTOPURINE
     Dates: end: 20221012
  8. METHOTREXATE [Suspect]
     Active Substance: METHOTREXATE
  9. PEGASPARGASE [Suspect]
     Active Substance: PEGASPARGASE
     Dates: end: 20220704
  10. PREDNISOLONE [Suspect]
     Active Substance: PREDNISOLONE
     Dates: end: 20220504
  11. THIOGUANINE [Suspect]
     Active Substance: THIOGUANINE
     Dates: end: 20221207
  12. VINCRISTINE SULFATE [Suspect]
     Active Substance: VINCRISTINE SULFATE
     Dates: end: 20221108

REACTIONS (1)
  - Venoocclusive liver disease [None]

NARRATIVE: CASE EVENT DATE: 20221208
